FAERS Safety Report 7864696-4 (Version None)
Quarter: 2011Q4

REPORT INFORMATION
  Report Type: 
  Country: None (occurrence: None)
  Receive Date: 20111028
  Receipt Date: 20111021
  Transmission Date: 20120403
  Serious: Yes (Death)
  Sender: FDA-Public Use
  Company Number: DE-GENZYME-CLOF-1001509

PATIENT
  Sex: Male
  Weight: 33 kg

DRUGS (8)
  1. EVOLTRA [Suspect]
     Dosage: 30 MG QDX4
     Route: 042
     Dates: start: 20110110, end: 20110113
  2. ETOPOSIDE [Suspect]
     Indication: ACUTE LYMPHOCYTIC LEUKAEMIA
     Dosage: 100 MG, QDX5
     Route: 065
     Dates: start: 20101206, end: 20101210
  3. CYCLOPHOSPHAMIDE [Suspect]
     Dosage: 250 MG, QDX4
     Route: 065
     Dates: start: 20110110, end: 20110113
  4. ETOPOSIDE [Suspect]
     Dosage: 100 MG, QDX4
     Route: 065
     Dates: start: 20110110, end: 20110113
  5. LASIX [Concomitant]
     Indication: DIURETIC THERAPY
     Dosage: 30 MG, UNK
     Dates: start: 20110313
  6. EVOLTRA [Suspect]
     Indication: ACUTE LYMPHOCYTIC LEUKAEMIA
     Dosage: 40 MG, QDX5
     Route: 042
     Dates: start: 20101206, end: 20101210
  7. MEPERIDINE HCL [Concomitant]
     Indication: PAIN
     Dosage: 100 MG, UNK
     Dates: start: 20110312
  8. CYCLOPHOSPHAMIDE [Suspect]
     Indication: ACUTE LYMPHOCYTIC LEUKAEMIA
     Dosage: 250 MG, QDX5
     Route: 065
     Dates: start: 20101206, end: 20101210

REACTIONS (3)
  - MULTI-ORGAN FAILURE [None]
  - ADENOVIRUS INFECTION [None]
  - BONE MARROW FAILURE [None]
